FAERS Safety Report 14918221 (Version 4)
Quarter: 2018Q3

REPORT INFORMATION
  Report Type: Spontaneous
  Country: BR (occurrence: BR)
  Receive Date: 20180521
  Receipt Date: 20180702
  Transmission Date: 20181010
  Serious: Yes (Life-Threatening, Other)
  Sender: FDA-Public Use
  Company Number: PHHY2018BR003180

PATIENT
  Age: 59 Year
  Sex: Female
  Weight: 84 kg

DRUGS (6)
  1. AMOXICILLIN + CLAVULANATE POTASSIUM [Suspect]
     Active Substance: AMOXICILLIN\CLAVULANATE POTASSIUM
     Indication: LUNG INFILTRATION
     Dosage: 1 DF, Q8H (1 TABLET 3 TIMES A DAY FOR 10 DAYS)
     Route: 048
  2. AMOXICILLIN + CLAVULANATE POTASSIUM [Suspect]
     Active Substance: AMOXICILLIN\CLAVULANATE POTASSIUM
     Indication: PNEUMONIA
  3. AMOXICILLIN AND CLAVULANATE POTASSIUM [Suspect]
     Active Substance: AMOXICILLIN\CLAVULANATE POTASSIUM
     Indication: PNEUMONIA
  4. AMOXICILLIN + CLAVULANATE POTASSIUM [Suspect]
     Active Substance: AMOXICILLIN\CLAVULANATE POTASSIUM
     Indication: DYSPNOEA
     Dosage: 1 DF, Q8H (1 TABLET 3 TIMES A DAY FOR 10 DAYS)
     Route: 048
     Dates: start: 20180510
  5. AMOXICILLIN AND CLAVULANATE POTASSIUM [Suspect]
     Active Substance: AMOXICILLIN\CLAVULANATE POTASSIUM
     Indication: LUNG INFILTRATION
  6. AMOXICILLIN AND CLAVULANATE POTASSIUM [Suspect]
     Active Substance: AMOXICILLIN\CLAVULANATE POTASSIUM
     Indication: DYSPNOEA
     Route: 065

REACTIONS (14)
  - Cough [Unknown]
  - Drug ineffective [Unknown]
  - Dizziness [Unknown]
  - Pneumonia [Unknown]
  - Pyrexia [Unknown]
  - Influenza [Unknown]
  - Influenza like illness [Unknown]
  - Oropharyngeal pain [Unknown]
  - Product use in unapproved indication [Unknown]
  - Pharyngitis [Unknown]
  - Abdominal pain upper [Unknown]
  - Apparent death [Unknown]
  - Tonsillitis [Unknown]
  - Malaise [Unknown]

NARRATIVE: CASE EVENT DATE: 20180511
